FAERS Safety Report 7530492-0 (Version None)
Quarter: 2011Q2

REPORT INFORMATION
  Report Type: 
  Country: None (occurrence: None)
  Receive Date: 20110607
  Receipt Date: 20110602
  Transmission Date: 20111010
  Serious: Yes (Other)
  Sender: FDA-Public Use
  Company Number: US-ABBOTT-11P-163-0730226-00

PATIENT
  Sex: Male
  Weight: 104.42 kg

DRUGS (6)
  1. IBUPROFEN [Concomitant]
     Indication: PRODUCT USED FOR UNKNOWN INDICATION
  2. HUMIRA [Suspect]
     Indication: RHEUMATOID ARTHRITIS
     Dosage: EVERY 3-4 WEEKS
     Route: 058
     Dates: start: 20030101, end: 20110301
  3. MULTIPLE VITAMIN [Concomitant]
     Indication: VITAMIN SUPPLEMENTATION
  4. UNKNOWN MEDICATION [Concomitant]
     Indication: BLOOD CHOLESTEROL INCREASED
  5. CHONDROITIN W/GLUCOSAMINE [Concomitant]
     Indication: RHEUMATOID ARTHRITIS
  6. UNKNOWN MEDICATIONS [Concomitant]
     Indication: ANXIETY

REACTIONS (4)
  - INAPPROPRIATE SCHEDULE OF DRUG ADMINISTRATION [None]
  - BLOOD URINE PRESENT [None]
  - BLADDER CANCER [None]
  - BLADDER NEOPLASM [None]
